FAERS Safety Report 6255774-4 (Version None)
Quarter: 2009Q3

REPORT INFORMATION
  Report Type: 
  Country: None (occurrence: None)
  Receive Date: 20090701
  Receipt Date: 20090616
  Transmission Date: 20100115
  Serious: Yes (Death, Life-Threatening, Hospitalization)
  Sender: FDA-Public Use
  Company Number: 2009S1010671

PATIENT
  Age: 90 Year
  Sex: Female

DRUGS (2)
  1. ALENDRONIC ACID (ALENDRONIC ACID) [Suspect]
     Indication: OSTEOPOROSIS
     Dosage: 70 MG, ORAL
     Route: 048
     Dates: start: 20090513
  2. ASPIRIN [Concomitant]

REACTIONS (1)
  - DEATH [None]
